FAERS Safety Report 9538012 (Version 1)
Quarter: 2013Q3

REPORT INFORMATION
  Report Type: Report from Study
  Country: US (occurrence: US)
  Receive Date: 20130919
  Receipt Date: 20130919
  Transmission Date: 20140515
  Serious: Yes (Hospitalization)
  Sender: FDA-Public Use
  Company Number: US-ABBVIE-13P-163-1145764-00

PATIENT
  Age: 80 Year
  Sex: Male

DRUGS (3)
  1. HUMIRA [Suspect]
     Indication: PSORIASIS
     Dates: start: 2010
  2. LIPITOR [Concomitant]
     Indication: BLOOD PRESSURE
  3. BLOOD PRESSURE MEDICINE [Concomitant]
     Indication: BLOOD PRESSURE

REACTIONS (3)
  - Gastrointestinal hypomotility [Not Recovered/Not Resolved]
  - Constipation [Not Recovered/Not Resolved]
  - Pancreatitis [Not Recovered/Not Resolved]
